FAERS Safety Report 18813542 (Version 3)
Quarter: 2021Q1

REPORT INFORMATION
  Report Type: Spontaneous
  Country: ES (occurrence: ES)
  Receive Date: 20210201
  Receipt Date: 20210219
  Transmission Date: 20210419
  Serious: Yes (Other)
  Sender: FDA-Public Use
  Company Number: ES-MACLEODS PHARMACEUTICALS US LTD-MAC2021029912

PATIENT

DRUGS (2)
  1. RISEDRONATE [Suspect]
     Active Substance: RISEDRONATE SODIUM
     Indication: BONE DEFORMITY
     Dosage: 35 MILLIGRAM, Q.W.
     Route: 048
  2. RISEDRONATE [Suspect]
     Active Substance: RISEDRONATE SODIUM
     Dosage: UNK, DILUTED IN VASELINE IN A CONCENTRATION OF 10 MG/ML
     Route: 065

REACTIONS (2)
  - Epidermal necrosis [Recovered/Resolved]
  - Erythema multiforme [Recovered/Resolved]
